FAERS Safety Report 7833371-4 (Version None)
Quarter: 2011Q4

REPORT INFORMATION
  Report Type: 
  Country: None (occurrence: None)
  Receive Date: 20111024
  Receipt Date: 20111018
  Transmission Date: 20120403
  Serious: No
  Sender: FDA-Public Use
  Company Number: US-PFIZER INC-2011251272

PATIENT
  Sex: Female
  Weight: 47.619 kg

DRUGS (2)
  1. LYRICA [Suspect]
     Indication: COMPLEX REGIONAL PAIN SYNDROME
     Dosage: 25 MG, 1X/DAY
     Route: 048
     Dates: end: 20111016
  2. AMITRIPTYLINE [Concomitant]
     Dosage: UNK

REACTIONS (5)
  - NAUSEA [None]
  - HYPERHIDROSIS [None]
  - DIARRHOEA [None]
  - DRUG WITHDRAWAL SYNDROME [None]
  - HEADACHE [None]
